FAERS Safety Report 7778258 (Version 3)
Quarter: 2014Q1

REPORT INFORMATION
  Report Type: Spontaneous
  Country: US (occurrence: US)
  Receive Date: 20110128
  Receipt Date: 20140320
  Transmission Date: 20141002
  Serious: Yes (Other)
  Sender: FDA-Public Use
  Company Number: US-BAYER-2010-001800

PATIENT
  Age: 27 Year
  Sex: Female
  Weight: 77.1 kg

DRUGS (3)
  1. YAZ [Suspect]
     Indication: ORAL CONTRACEPTION
     Dosage: UNK UNK, QD
     Dates: start: 200609, end: 200810
  2. METFORMIN [Concomitant]
     Indication: GLUCOSE TOLERANCE IMPAIRED
     Dosage: 500 MG, QD
     Dates: start: 2004
  3. ARMOUR THYROID [Concomitant]
     Indication: POLYCYSTIC OVARIES
     Dosage: 30 MG, QD
     Dates: start: 2004, end: 2008

REACTIONS (3)
  - Cholecystitis chronic [None]
  - Cholelithiasis [None]
  - Pain [None]
